FAERS Safety Report 8501436-X (Version None)
Quarter: 2012Q3

REPORT INFORMATION
  Report Type: 
  Country: None (occurrence: None)
  Receive Date: 20120710
  Receipt Date: 20120622
  Transmission Date: 20120928
  Serious: No
  Sender: FDA-Public Use
  Company Number: US-ASTRAZENECA-2012SE42804

PATIENT
  Age: 53 Year
  Sex: Male
  Weight: 67.8 kg

DRUGS (7)
  1. TOPROL-XL [Suspect]
     Route: 048
  2. PRILOSEC OTC [Suspect]
     Route: 048
  3. NORVASC [Concomitant]
  4. TOPROL-XL [Suspect]
     Route: 048
  5. TRICOR [Concomitant]
  6. CRESTOR [Suspect]
     Route: 048
  7. HYDROCHLOROTHIAZIDE [Concomitant]

REACTIONS (8)
  - BACK PAIN [None]
  - JOINT STIFFNESS [None]
  - ARTHRALGIA [None]
  - PARAESTHESIA [None]
  - DRUG DOSE OMISSION [None]
  - BLOOD TRIGLYCERIDES INCREASED [None]
  - MUSCULAR WEAKNESS [None]
  - BLOOD CHOLESTEROL INCREASED [None]
